FAERS Safety Report 9067545 (Version 3)
Quarter: 2013Q3

REPORT INFORMATION
  Report Type: Spontaneous
  Country: US (occurrence: US)
  Receive Date: 20130214
  Receipt Date: 20130731
  Transmission Date: 20140515
  Serious: Yes (Death, Hospitalization)
  Sender: FDA-Public Use
  Company Number: US-B.I. PHARMACEUTICALS,INC./RIDGEFIELD-2013-BI-03934BP

PATIENT
  Sex: Female
  Weight: 59.87 kg

DRUGS (9)
  1. PRADAXA [Suspect]
     Indication: ANTICOAGULANT THERAPY
     Dosage: 300 MG
     Route: 048
     Dates: start: 20110128, end: 20110212
  2. TRAMADOL [Concomitant]
     Indication: PAIN
  3. PRILOSEC [Concomitant]
     Dosage: 40 MG
  4. ZETIA [Concomitant]
     Dosage: 10 MG
  5. VERAPAMIL [Concomitant]
     Dosage: 240 MG
  6. HYZAAR [Concomitant]
  7. LIPITOR [Concomitant]
     Dosage: 10 MG
  8. ZOLOFT [Concomitant]
     Dosage: 50 MG
  9. FOSAMAX [Concomitant]

REACTIONS (2)
  - Cardiac arrest [Fatal]
  - Gastrointestinal haemorrhage [Recovered/Resolved]
